FAERS Safety Report 6449184-4 (Version None)
Quarter: 2009Q4

REPORT INFORMATION
  Report Type: 
  Country: None (occurrence: None)
  Receive Date: 20091120
  Receipt Date: 20091108
  Transmission Date: 20100525
  Serious: Yes (Hospitalization, Other)
  Sender: FDA-Public Use
  Company Number: PHHY2009PL48829

PATIENT
  Sex: Female
  Weight: 49 kg

DRUGS (5)
  1. CERTICAN [Suspect]
     Indication: RENAL TRANSPLANT
     Dosage: 2.25 MG, BID
     Route: 048
     Dates: start: 20090604, end: 20090706
  2. CERTICAN [Suspect]
     Dosage: 0.75 MG, BID
     Route: 048
     Dates: start: 20090706
  3. PROGRAF [Suspect]
     Indication: IMMUNOSUPPRESSION
     Dosage: 8 MG, UNK
     Dates: start: 20090306
  4. PROGRAF [Suspect]
     Dosage: 3 MG, UNK
  5. ENCORTON [Concomitant]
     Indication: IMMUNOSUPPRESSION
     Dosage: UNK
     Dates: start: 20090306

REACTIONS (5)
  - ANAEMIA [None]
  - CYTOMEGALOVIRUS INFECTION [None]
  - DRUG LEVEL INCREASED [None]
  - GOITRE [None]
  - RENAL IMPAIRMENT [None]
